FAERS Safety Report 20191534 (Version 1)
Quarter: 2021Q4

REPORT INFORMATION
  Report Type: Spontaneous
  Country: ES (occurrence: ES)
  Receive Date: 20211216
  Receipt Date: 20211216
  Transmission Date: 20220303
  Serious: Yes (Other)
  Sender: FDA-Public Use
  Company Number: ES-EMA-DD-20211201-Bisht_p-152610

PATIENT
  Age: 70 Year
  Sex: Male

DRUGS (6)
  1. PRAMIPEXOLE [Suspect]
     Active Substance: PRAMIPEXOLE
     Indication: Parkinson^s disease
     Dosage: 2.62 MILLIGRAM, ONCE A DAY (DAILY; EXTENDED RELEASE)
     Route: 065
  2. SAFINAMIDE [Suspect]
     Active Substance: SAFINAMIDE
     Indication: Parkinson^s disease
     Dosage: 50 MILLIGRAM, ONCE A DAY (DAILY)
     Route: 065
  3. ROTIGOTINE [Concomitant]
     Active Substance: ROTIGOTINE
     Indication: Parkinson^s disease
     Dosage: 8 MILLIGRAM, ONCE A DAY (DAILY)
     Route: 065
  4. RASAGILINE [Concomitant]
     Active Substance: RASAGILINE
     Indication: Parkinson^s disease
     Dosage: 1 MILLIGRAM, ONCE A DAY (DAILY)
     Route: 065
  5. ENTACAPONE [Concomitant]
     Active Substance: ENTACAPONE
     Indication: Parkinson^s disease
     Dosage: 75 MILLIGRAM, ONCE A DAY
     Route: 065
  6. CARBIDOPA\LEVODOPA [Concomitant]
     Active Substance: CARBIDOPA\LEVODOPA
     Indication: Parkinson^s disease
     Dosage: UNK (600/300 MG)
     Route: 065

REACTIONS (4)
  - Hallucination, visual [Recovering/Resolving]
  - Anxiety [Unknown]
  - Cognitive disorder [Unknown]
  - Hypersexuality [Recovered/Resolved]
